FAERS Safety Report 4360221-3 (Version None)
Quarter: 2004Q2

REPORT INFORMATION
  Report Type: 
  Country: None (occurrence: None)
  Receive Date: 20040513
  Receipt Date: 20040506
  Transmission Date: 20050107
  Serious: Yes (Death, Hospitalization)
  Sender: FDA-Public Use
  Company Number: FRWYE744806MAY04

PATIENT
  Age: 70 Year
  Sex: Female

DRUGS (7)
  1. OXAZEPAM [Suspect]
  2. ALDACTONE [Suspect]
     Dosage: ORAL
     Route: 048
     Dates: end: 20040411
  3. LASIX [Suspect]
     Dosage: ORAL
     Route: 048
     Dates: end: 20040411
  4. FOLIC ACID [Concomitant]
  5. TRACLEER [Suspect]
     Dosage: ORAL
     Route: 048
     Dates: start: 20040201, end: 20040301
  6. TRACLEER [Suspect]
     Dosage: ORAL
     Route: 048
     Dates: start: 20040301, end: 20040411
  7. CALCIUM WITH VITAMIN D (CALCIUM PHOSPHATE/CALCIUM SODIUM LACTATE/ERGOC [Concomitant]

REACTIONS (8)
  - CARDIAC ARREST [None]
  - CARDIAC FAILURE [None]
  - CARDIOGENIC SHOCK [None]
  - CHEST PAIN [None]
  - CONDITION AGGRAVATED [None]
  - HOT FLUSH [None]
  - HYPERVOLAEMIA [None]
  - MALAISE [None]
